FAERS Safety Report 6141762-5 (Version None)
Quarter: 2009Q2

REPORT INFORMATION
  Report Type: 
  Country: None (occurrence: None)
  Receive Date: 20090402
  Receipt Date: 20081111
  Transmission Date: 20091009
  Serious: No
  Sender: FDA-Public Use
  Company Number: US-ABBOTT-08P-163-0460540-00

PATIENT
  Sex: Female
  Weight: 63.56 kg

DRUGS (4)
  1. LUPRON DEPOT [Suspect]
     Indication: ENDOMETRIOSIS
     Route: 030
     Dates: start: 20080605
  2. LEKOVIT CA [Concomitant]
     Indication: DRUG USE FOR UNKNOWN INDICATION
     Dosage: 600 MG DAILY
     Route: 048
  3. TOCOPHERYL ACETATE [Concomitant]
     Indication: DRUG USE FOR UNKNOWN INDICATION
     Dosage: 400 MG DAILY
     Route: 048
  4. ACETYLSALICYLIC ACID [Concomitant]
     Indication: ROSACEA
     Dosage: 81 MG DAILY
     Route: 048

REACTIONS (1)
  - HEADACHE [None]
